FAERS Safety Report 8987566 (Version 1)
Quarter: 2012Q4

REPORT INFORMATION
  Report Type: Report from Study
  Country: FR (occurrence: FR)
  Receive Date: 20121227
  Receipt Date: 20121227
  Transmission Date: 20130627
  Serious: Yes (Hospitalization)
  Sender: FDA-Public Use
  Company Number: PHHO2012FR018473

PATIENT

DRUGS (4)
  1. RAD 666 / RAD 001A [Suspect]
     Indication: RENAL TRANSPLANT
     Dosage: 3 mg, QD
     Route: 048
     Dates: start: 20121205
  2. RAD 666 / RAD 001A [Suspect]
     Dosage: UNK
     Route: 048
     Dates: start: 20121205
  3. NEORAL [Suspect]
     Indication: RENAL TRANSPLANT
     Dosage: 120 mg, QD
     Dates: start: 20121023, end: 20121213
  4. CELLCEPT [Concomitant]
     Indication: RENAL TRANSPLANT
     Dosage: 2 mg, QD
     Route: 002
     Dates: start: 20121023

REACTIONS (3)
  - Aphthous stomatitis [Not Recovered/Not Resolved]
  - Diarrhoea [Not Recovered/Not Resolved]
  - Toxicity to various agents [Not Recovered/Not Resolved]
